FAERS Safety Report 9097388 (Version 1)
Quarter: 2013Q1

REPORT INFORMATION
  Report Type: Spontaneous
  Country: IT (occurrence: IT)
  Receive Date: 20130212
  Receipt Date: 20130212
  Transmission Date: 20140127
  Serious: Yes (Death, Hospitalization)
  Sender: FDA-Public Use
  Company Number: IT-ELI_LILLY_AND_COMPANY-IT201302000639

PATIENT
  Age: 73 Year
  Sex: Male

DRUGS (2)
  1. HUMALOG LISPRO [Suspect]
  2. INSULIN GLARGINE [Concomitant]

REACTIONS (3)
  - Death [Fatal]
  - Pneumonia [Unknown]
  - Lymphoma [Not Recovered/Not Resolved]
